FAERS Safety Report 7957257-X (Version None)
Quarter: 2011Q4

REPORT INFORMATION
  Report Type: 
  Country: None (occurrence: None)
  Receive Date: 20111205
  Receipt Date: 20111130
  Transmission Date: 20120403
  Serious: Yes (Life-Threatening, Hospitalization, Other)
  Sender: FDA-Public Use
  Company Number: RO-ABBOTT-11P-135-0880005-00

PATIENT
  Sex: Male
  Weight: 84 kg

DRUGS (6)
  1. HUMIRA [Suspect]
     Indication: PSORIASIS
     Route: 058
  2. FANITOLIN [Concomitant]
     Indication: GRAND MAL CONVULSION
  3. DEPAKENE [Concomitant]
     Indication: GRAND MAL CONVULSION
  4. METOPROLOL [Concomitant]
     Indication: PRODUCT USED FOR UNKNOWN INDICATION
     Dates: start: 20110301
  5. DEPAKENE [Concomitant]
     Indication: EPILEPSY
     Dates: start: 20090101
  6. FANITOLIN [Concomitant]
     Indication: EPILEPSY
     Route: 048
     Dates: start: 20090101

REACTIONS (6)
  - GRAND MAL CONVULSION [None]
  - CONFUSIONAL STATE [None]
  - MOTOR DYSFUNCTION [None]
  - ISCHAEMIC STROKE [None]
  - SINUS BRADYCARDIA [None]
  - FACE INJURY [None]
